FAERS Safety Report 13413338 (Version 5)
Quarter: 2017Q4

REPORT INFORMATION
  Report Type: Spontaneous
  Country: DE (occurrence: DE)
  Receive Date: 20170407
  Receipt Date: 20171114
  Transmission Date: 20180320
  Serious: Yes (Hospitalization, Other)
  Sender: FDA-Public Use
  Company Number: PHHY2017DE049291

PATIENT
  Sex: Male

DRUGS (6)
  1. GLIVEC [Suspect]
     Active Substance: IMATINIB MESYLATE
     Indication: CHRONIC MYELOID LEUKAEMIA
     Dosage: 600 MG, QD
     Route: 048
     Dates: start: 200604
  2. UROL [Concomitant]
     Indication: HYPERTENSION
  3. GLIVEC [Suspect]
     Active Substance: IMATINIB MESYLATE
     Dosage: 400 MG, QD
     Route: 048
     Dates: start: 20060608
  4. CANDESARTAN. [Concomitant]
     Active Substance: CANDESARTAN
     Indication: BENIGN PROSTATIC HYPERPLASIA
  5. UROL [Concomitant]
     Indication: BENIGN PROSTATIC HYPERPLASIA
     Dosage: 475 MG, QD
     Route: 048
     Dates: start: 2006
  6. CANDESARTAN. [Concomitant]
     Active Substance: CANDESARTAN
     Indication: HYPERTENSION
     Dosage: 16 MG, QD
     Route: 048
     Dates: start: 2006

REACTIONS (7)
  - Soft tissue sarcoma [Recovered/Resolved with Sequelae]
  - Sarcoma [Recovered/Resolved with Sequelae]
  - Neoplasm malignant [Not Recovered/Not Resolved]
  - Cholesteatoma [Unknown]
  - Lymphadenopathy [Unknown]
  - Second primary malignancy [Not Recovered/Not Resolved]
  - Chronic lymphocytic leukaemia [Not Recovered/Not Resolved]

NARRATIVE: CASE EVENT DATE: 201208
